FAERS Safety Report 5334416-6 (Version None)
Quarter: 2007Q2

REPORT INFORMATION
  Report Type: 
  Country: None (occurrence: None)
  Receive Date: 20070523
  Receipt Date: 20070523
  Transmission Date: 20071010
  Serious: No
  Sender: FDA-Public Use
  Company Number: None

PATIENT
  Sex: Female
  Weight: 51.8 kg

DRUGS (1)
  1. RITUXIMAB (MOAB C2B8 ANTI CD20, CHIMERIC) [Suspect]
     Dosage: 1156 MG

REACTIONS (8)
  - ASTHENIA [None]
  - ATELECTASIS [None]
  - BREATH SOUNDS ABNORMAL [None]
  - CONFUSIONAL STATE [None]
  - DELIRIUM [None]
  - PYREXIA [None]
  - RESPIRATORY DISTRESS [None]
  - WHEEZING [None]
